FAERS Safety Report 24211743 (Version 2)
Quarter: 2024Q4

REPORT INFORMATION
  Report Type: Report from Study
  Country: US (occurrence: US)
  Receive Date: 20240814
  Receipt Date: 20241223
  Transmission Date: 20250114
  Serious: Yes (Other)
  Sender: OTSUKA
  Company Number: US-OTSUKA-2024_022126

PATIENT
  Age: 50 Year
  Sex: Female
  Weight: 74.39 kg

DRUGS (2)
  1. DEXTROMETHORPHAN HYDROBROMIDE\QUINIDINE SULFATE [Suspect]
     Active Substance: DEXTROMETHORPHAN HYDROBROMIDE\QUINIDINE SULFATE
     Indication: Affect lability
     Dosage: (20-10MG), BID
     Route: 065
     Dates: start: 2013
  2. DEXTROMETHORPHAN HYDROBROMIDE\QUINIDINE SULFATE [Suspect]
     Active Substance: DEXTROMETHORPHAN HYDROBROMIDE\QUINIDINE SULFATE
     Dosage: 1 DF (20-10MG), QD
     Route: 065

REACTIONS (7)
  - Transient ischaemic attack [Unknown]
  - Skin cancer [Unknown]
  - Speech disorder [Unknown]
  - Frustration tolerance decreased [Unknown]
  - Disease recurrence [Unknown]
  - Therapy interrupted [Not Recovered/Not Resolved]
  - Intentional product use issue [Not Recovered/Not Resolved]

NARRATIVE: CASE EVENT DATE: 20230801
